FAERS Safety Report 21652119 (Version 1)
Quarter: 2022Q4

REPORT INFORMATION
  Report Type: Spontaneous
  Country: CN (occurrence: CN)
  Receive Date: 20221128
  Receipt Date: 20221128
  Transmission Date: 20230113
  Serious: Yes (Other)
  Sender: FDA-Public Use
  Company Number: CN-PFIZER INC-PV202200110117

PATIENT
  Age: 12 Year
  Sex: Female
  Weight: 49 kg

DRUGS (2)
  1. LINEZOLID [Suspect]
     Active Substance: LINEZOLID
     Indication: Intracranial infection
     Dosage: 500 MG/KG, 3X/DAY (Q8H; ALSO REPORTE DAS ONCE A DAY)
     Route: 048
     Dates: start: 20221110, end: 20221112
  2. LINEZOLID [Suspect]
     Active Substance: LINEZOLID
     Dosage: 600 MG, 2X/DAY
     Dates: start: 20221112

REACTIONS (3)
  - Mental impairment [Recovering/Resolving]
  - Somnolence [Recovering/Resolving]
  - Off label use [Unknown]

NARRATIVE: CASE EVENT DATE: 20221110
